FAERS Safety Report 10669301 (Version 1)
Quarter: 2014Q4

REPORT INFORMATION
  Report Type: Spontaneous
  Country: CA (occurrence: CA)
  Receive Date: 20141222
  Receipt Date: 20141222
  Transmission Date: 20150529
  Serious: Yes (Death)
  Sender: FDA-Public Use
  Company Number: CA-ELI_LILLY_AND_COMPANY-CA201412007196

PATIENT
  Age: 22 Year
  Sex: Male

DRUGS (1)
  1. ZYPREXA [Suspect]
     Active Substance: OLANZAPINE
     Indication: PRODUCT USED FOR UNKNOWN INDICATION
     Dosage: UNK, UNKNOWN
     Route: 065

REACTIONS (6)
  - Abnormal behaviour [Unknown]
  - Sudden cardiac death [Fatal]
  - Mood altered [Unknown]
  - Toxicity to various agents [Fatal]
  - Crime [Unknown]
  - Aggression [Unknown]
